FAERS Safety Report 4666266-8 (Version None)
Quarter: 2005Q2

REPORT INFORMATION
  Report Type: 
  Country: None (occurrence: None)
  Receive Date: 20050518
  Receipt Date: 20050506
  Transmission Date: 20051028
  Serious: Yes (Death)
  Sender: FDA-Public Use
  Company Number: 430002L05JPN

PATIENT
  Age: 5 Year
  Sex: Female

DRUGS (7)
  1. NOVANTRONE [Suspect]
     Dosage: ITRAVENOUS (NOT OTHERWISE SPECIFIED)
     Route: 042
  2. DAUNORUBICIN HYDROCHLORIDE [Suspect]
     Dosage: INTRAVENOUS (NOT OTHERWISE SPECIFIED)
     Route: 042
  3. ETOPOSIDE [Suspect]
     Dosage: 60 MG/KG
  4. MELPHALAN (MELPHALAN) [Suspect]
     Dosage: 180 MG/M2
  5. PREDNISOLONE [Suspect]
     Indication: GRAFT VERSUS HOST DISEASE
  6. TACROLIMUS (TACROLIMUS) [Suspect]
     Indication: PROPHYLAXIS AGAINST TRANSPLANT REJECTION
  7. METHOTREXATE [Concomitant]

REACTIONS (5)
  - MYOCARDITIS [None]
  - RADIATION INJURY [None]
  - TACHYCARDIA [None]
  - VENTRICULAR ARRHYTHMIA [None]
  - VENTRICULAR FIBRILLATION [None]
